FAERS Safety Report 18369603 (Version 2)
Quarter: 2020Q4

REPORT INFORMATION
  Report Type: Report from Study
  Country: None (occurrence: CA)
  Receive Date: 20201012
  Receipt Date: 20201105
  Transmission Date: 20210114
  Serious: Yes (Other)
  Sender: FDA-Public Use
  Company Number: CA-ABBVIE-20K-028-3601263-00

PATIENT
  Age: 64 Year
  Sex: Female
  Weight: 90.8 kg

DRUGS (1)
  1. SKYRIZI [Suspect]
     Active Substance: RISANKIZUMAB-RZAA
     Indication: PSORIASIS
     Route: 058
     Dates: start: 20200603

REACTIONS (11)
  - Head injury [Recovered/Resolved]
  - Injury [Recovered/Resolved]
  - Skin texture abnormal [Recovered/Resolved]
  - Haematoma [Recovered/Resolved with Sequelae]
  - Pain [Recovered/Resolved]
  - Furuncle [Not Recovered/Not Resolved]
  - Fall [Recovered/Resolved]
  - Dizziness postural [Not Recovered/Not Resolved]
  - Papule [Not Recovered/Not Resolved]
  - Limb mass [Not Recovered/Not Resolved]
  - Loss of consciousness [Recovered/Resolved]

NARRATIVE: CASE EVENT DATE: 2020
